FAERS Safety Report 6007424-X (Version None)
Quarter: 2008Q4

REPORT INFORMATION
  Report Type: 
  Country: None (occurrence: None)
  Receive Date: 20081217
  Receipt Date: 20080415
  Transmission Date: 20090506
  Serious: No
  Sender: FDA-Public Use
  Company Number: US-ASTRAZENECA-2008UW07711

PATIENT
  Age: 78 Year
  Sex: Female
  Weight: 67.6 kg

DRUGS (8)
  1. CRESTOR [Suspect]
     Indication: BLOOD CHOLESTEROL INCREASED
     Route: 048
     Dates: start: 20080201
  2. SYNTHROID [Concomitant]
  3. HYZAAR [Concomitant]
     Dosage: 100/12.5 MG QD
  4. PLAVIX [Concomitant]
  5. NORVASC [Concomitant]
  6. COREG [Concomitant]
  7. AMIODARONE HCL [Concomitant]
  8. DIGOXIN [Concomitant]
     Dosage: 0.125 MG ONE HALF QD

REACTIONS (3)
  - ABDOMINAL DISTENSION [None]
  - CONSTIPATION [None]
  - FLATULENCE [None]
